FAERS Safety Report 9410208 (Version 2)
Quarter: 2013Q3

REPORT INFORMATION
  Report Type: Spontaneous
  Country: AU (occurrence: AU)
  Receive Date: 20130719
  Receipt Date: 20130807
  Transmission Date: 20140515
  Serious: Yes (Death, Other)
  Sender: FDA-Public Use
  Company Number: AU-B.I. PHARMACEUTICALS,INC./RIDGEFIELD-2013-AU-00862AU

PATIENT
  Age: 99 Year
  Sex: Female

DRUGS (14)
  1. PRADAXA [Suspect]
     Indication: CEREBROVASCULAR ACCIDENT PROPHYLAXIS
     Dosage: 220 MG
     Dates: start: 20110914, end: 2012
  2. PRADAXA [Suspect]
     Indication: ATRIAL FIBRILLATION
     Dosage: 110 MG
     Dates: start: 2012
  3. AMIODARONE HYDROCHLORIDE [Concomitant]
     Dosage: 100 MG
     Route: 048
  4. CARTIA [Concomitant]
     Dosage: 100 MG
     Route: 048
  5. FRUSEMIDE [Concomitant]
     Route: 048
  6. LANOXIN-PG [Concomitant]
     Dosage: 62.5 MCG
     Route: 048
  7. LYRICA [Concomitant]
     Indication: SCIATICA
     Route: 048
  8. NITROLINGUAL [Concomitant]
     Indication: SCIATICA
     Route: 060
  9. OROXINE [Concomitant]
     Dosage: 25 MCG
     Route: 048
  10. OROXINE [Concomitant]
     Dosage: 50 MG
     Route: 048
  11. PANAMAX [Concomitant]
     Indication: OSTEOARTHRITIS
     Dosage: 500 MG
     Route: 048
  12. PATANOL [Concomitant]
     Dosage: 0.2 RT
     Route: 061
  13. SLOW-K [Concomitant]
     Dosage: 600 MG
     Route: 048
  14. SYMBICORT [Concomitant]
     Dosage: 200 MCG-6 MCG
     Route: 055

REACTIONS (9)
  - Cardiac failure [Fatal]
  - Myocardial infarction [Unknown]
  - Myocardial infarction [Unknown]
  - Contusion [Unknown]
  - Underdose [Unknown]
  - Renal impairment [Unknown]
  - Hyperuricaemia [Unknown]
  - Proteinuria [Unknown]
  - Urine output decreased [Unknown]
